FAERS Safety Report 17284986 (Version 1)
Quarter: 2020Q1

REPORT INFORMATION
  Report Type: Report from Study
  Country: US (occurrence: US)
  Receive Date: 20200117
  Receipt Date: 20200117
  Transmission Date: 20200409
  Serious: Yes (Other)
  Sender: FDA-Public Use
  Company Number: US-TAIHO ONCOLOGY  INC-EU-2019-04207

PATIENT
  Age: 84 Year
  Sex: Female
  Weight: 61.74 kg

DRUGS (12)
  1. LASIX [Concomitant]
     Active Substance: FUROSEMIDE
     Dosage: NI
  2. ZOLOFT [Concomitant]
     Active Substance: SERTRALINE HYDROCHLORIDE
     Dosage: NI
  3. DESMOPRESSIN [Concomitant]
     Active Substance: DESMOPRESSIN
     Dosage: NI
  4. VITAMIN B12 [Concomitant]
     Active Substance: CYANOCOBALAMIN
     Dosage: NI
  5. BIOTIN [Concomitant]
     Active Substance: BIOTIN
     Dosage: NI
  6. VITAMIN D [Concomitant]
     Active Substance: VITAMIN D NOS
  7. LONSURF [Suspect]
     Active Substance: TIPIRACIL HYDROCHLORIDE\TRIFLURIDINE
     Indication: COLON CANCER STAGE IV
     Dosage: CURRENT CYCLE 1
     Route: 048
     Dates: start: 20191209
  8. AMBIEN [Concomitant]
     Active Substance: ZOLPIDEM TARTRATE
  9. FUROSEMIDE. [Concomitant]
     Active Substance: FUROSEMIDE
  10. LONSURF [Suspect]
     Active Substance: TIPIRACIL HYDROCHLORIDE\TRIFLURIDINE
     Dosage: CURRENT CYCLE 2
     Route: 048
     Dates: start: 20200106
  11. AMLODIPINE [Concomitant]
     Active Substance: AMLODIPINE BESYLATE
     Dosage: NI
  12. TRAZODONE [Concomitant]
     Active Substance: TRAZODONE HYDROCHLORIDE
     Dosage: NI

REACTIONS (5)
  - Retinal aneurysm rupture [Unknown]
  - Visual impairment [Unknown]
  - Hypersomnia [Unknown]
  - Cataract [Unknown]
  - Somnolence [Unknown]

NARRATIVE: CASE EVENT DATE: 201912
